FAERS Safety Report 7801872-0 (Version None)
Quarter: 2011Q4

REPORT INFORMATION
  Report Type: 
  Country: None (occurrence: None)
  Receive Date: 20111005
  Receipt Date: 20110922
  Transmission Date: 20120403
  Serious: Yes (Hospitalization)
  Sender: FDA-Public Use
  Company Number: UTC-010410

PATIENT
  Age: 38 Year
  Sex: Female
  Weight: 53.7 kg

DRUGS (16)
  1. NORVIR [Concomitant]
  2. METHADON (METHADONE HYDROCHLORIDE) [Concomitant]
  3. MARCUMAR [Concomitant]
  4. NALOXONE [Concomitant]
  5. REYATAZ 9ATAZANAVIR SULFATE) [Concomitant]
  6. VIAGRA [Concomitant]
  7. ALDACTONE [Concomitant]
  8. TRACLEER [Concomitant]
  9. OXAZEPAM [Concomitant]
  10. OXYCONTIN [Concomitant]
  11. TRUVADA [Concomitant]
  12. POTASSIUM CHLORIDE [Concomitant]
  13. MAGNESIOCARD [Concomitant]
  14. REMODULIN [Suspect]
     Indication: PULMONARY ARTERIAL HYPERTENSION
     Dosage: 33.12 UG/KG (0.023 UG/KG, 1 IN 1 MIN) SUBCUTANEOUS, 31.68 UG/KG (0.022 UG/KG, 1 IN 1 MIN), SUBCUTANE
     Route: 058
     Dates: end: 20110815
  15. REMODULIN [Suspect]
     Indication: PULMONARY ARTERIAL HYPERTENSION
     Dosage: 33.12 UG/KG (0.023 UG/KG, 1 IN 1 MIN) SUBCUTANEOUS, 31.68 UG/KG (0.022 UG/KG, 1 IN 1 MIN), SUBCUTANE
     Route: 058
     Dates: start: 20110816
  16. MOTILIUM [Concomitant]

REACTIONS (7)
  - NAUSEA [None]
  - DIARRHOEA [None]
  - SYNCOPE [None]
  - HYPOGLYCAEMIA [None]
  - INAPPROPRIATE ANTIDIURETIC HORMONE SECRETION [None]
  - HYPONATRAEMIA [None]
  - VOMITING [None]
